FAERS Safety Report 5695021-5 (Version None)
Quarter: 2008Q2

REPORT INFORMATION
  Report Type: 
  Country: None (occurrence: None)
  Receive Date: 20080404
  Receipt Date: 20080326
  Transmission Date: 20081010
  Serious: Yes (Hospitalization)
  Sender: FDA-Public Use
  Company Number: PL-ROCHE-555561

PATIENT
  Sex: Male
  Weight: 83 kg

DRUGS (4)
  1. CELLCEPT [Suspect]
     Indication: LUPUS NEPHRITIS
     Dosage: DOSAGE: 3 X 1G
     Route: 048
     Dates: start: 20080315
  2. METHYLPREDNISOLONE [Concomitant]
     Indication: LUPUS NEPHRITIS
     Dosage: DRUG NAME: METYPRED. DOSAGE: 1 X 8MG
     Route: 048
     Dates: start: 19940101
  3. ENDOXAN [Concomitant]
     Indication: LUPUS NEPHRITIS
     Route: 042
     Dates: start: 19940101
  4. SIMVASTATIN [Concomitant]
     Indication: LUPUS NEPHRITIS
     Dosage: DRUG NAME: VASTAN; DOSAGE: 1 X 20 MG
     Route: 048

REACTIONS (3)
  - BONE PAIN [None]
  - METATARSALGIA [None]
  - MUSCULOSKELETAL PAIN [None]
